FAERS Safety Report 24549001 (Version 1)
Quarter: 2024Q4

REPORT INFORMATION
  Report Type: Spontaneous
  Country: US (occurrence: None)
  Receive Date: 20241024
  Receipt Date: 20241024
  Transmission Date: 20250115
  Serious: Yes (Other)
  Sender: Public
  Company Number: None

PATIENT
  Sex: Female

DRUGS (6)
  1. BOTOX [Suspect]
     Active Substance: ONABOTULINUMTOXINA
     Indication: Migraine
     Dates: start: 20240131
  2. B12 [Concomitant]
  3. BIOTIN [Concomitant]
     Active Substance: BIOTIN
  4. MAGNESIUM [Concomitant]
     Active Substance: MAGNESIUM
  5. MOTRIN IB [Concomitant]
     Active Substance: IBUPROFEN
  6. VITAMIN D3 [Concomitant]
     Active Substance: CHOLECALCIFEROL

REACTIONS (1)
  - Appendicectomy [None]
